FAERS Safety Report 8740224 (Version 5)
Quarter: 2014Q1

REPORT INFORMATION
  Report Type: Report from Study
  Country: BR (occurrence: BR)
  Receive Date: 20120823
  Receipt Date: 20140129
  Transmission Date: 20141002
  Serious: Yes (Hospitalization, Other)
  Sender: FDA-Public Use
  Company Number: BR-ROCHE-1000854

PATIENT
  Age: 64 Year
  Sex: Female
  Weight: 59 kg

DRUGS (14)
  1. MABTHERA [Suspect]
     Indication: RHEUMATOID ARTHRITIS
     Dosage: HER LATEST DOSE WAS ON 08/DEC/2011,
     Route: 042
     Dates: start: 20100301
  2. MABTHERA [Suspect]
     Route: 065
     Dates: start: 20111208
  3. PARIET [Concomitant]
  4. RANITIDINE [Concomitant]
  5. ACTONEL [Concomitant]
  6. ARAVA [Concomitant]
  7. METHOTREXATE [Concomitant]
     Route: 065
  8. FOLIC ACID [Concomitant]
  9. OLMETEC [Concomitant]
  10. ASCORBIC ACID [Concomitant]
  11. FORTEO [Concomitant]
  12. HUMIRA [Concomitant]
  13. BENICAR [Concomitant]
  14. FOSAMAX [Concomitant]

REACTIONS (15)
  - Arthropathy [Unknown]
  - Joint injury [Unknown]
  - Cataract [Not Recovered/Not Resolved]
  - Choking sensation [Unknown]
  - Disease progression [Unknown]
  - Body height decreased [Recovered/Resolved]
  - Body height increased [Unknown]
  - Impaired healing [Recovered/Resolved]
  - Influenza [Not Recovered/Not Resolved]
  - Pain [Unknown]
  - Dyspnoea [Unknown]
  - Gingival bleeding [Not Recovered/Not Resolved]
  - Tooth socket haemorrhage [Not Recovered/Not Resolved]
  - Umbilical haemorrhage [Not Recovered/Not Resolved]
  - Epistaxis [Not Recovered/Not Resolved]
